FAERS Safety Report 9158317 (Version 3)
Quarter: 2013Q2

REPORT INFORMATION
  Report Type: Report from Study
  Country: US (occurrence: US)
  Receive Date: 20130312
  Receipt Date: 20130415
  Transmission Date: 20140414
  Serious: Yes (Other)
  Sender: FDA-Public Use
  Company Number: US-BAYER-2013-021730

PATIENT
  Age: 64 Year
  Sex: Male
  Weight: 88.89 kg

DRUGS (10)
  1. STIVARGA [Suspect]
     Indication: RECTAL CANCER
     Dosage: 160 MG, QD (40MG, 4 TABLETS, DAILY)
     Route: 048
     Dates: start: 20130215, end: 20130306
  2. DERMATOLOGICALS [Concomitant]
     Indication: PALMAR-PLANTAR ERYTHRODYSAESTHESIA SYNDROME
  3. COQ10 [Concomitant]
  4. FENTANYL [Concomitant]
  5. MORPHINE [Concomitant]
  6. IBUPROFEN [Concomitant]
  7. IRON [Concomitant]
  8. MULTIVITAMIN [Concomitant]
  9. MACRODANTIN [Concomitant]
  10. MILK THISTLE [Concomitant]

REACTIONS (11)
  - Subcutaneous abscess [Not Recovered/Not Resolved]
  - Wound [Not Recovered/Not Resolved]
  - Hypoacusis [Not Recovered/Not Resolved]
  - Palmar-plantar erythrodysaesthesia syndrome [None]
  - Fatigue [Not Recovered/Not Resolved]
  - Dysphonia [Not Recovered/Not Resolved]
  - Asthenia [Not Recovered/Not Resolved]
  - Decreased appetite [Not Recovered/Not Resolved]
  - Stomatitis [Not Recovered/Not Resolved]
  - Dry skin [Not Recovered/Not Resolved]
  - Blood pressure increased [None]
